FAERS Safety Report 10187301 (Version 6)
Quarter: 2015Q2

REPORT INFORMATION
  Report Type: Spontaneous
  Country: US (occurrence: US)
  Receive Date: 20140522
  Receipt Date: 20150622
  Transmission Date: 20150821
  Serious: Yes (Death, Hospitalization, Other)
  Sender: FDA-Public Use
  Company Number: US-009507513-1405USA009974

PATIENT
  Sex: Male
  Weight: 69.84 kg

DRUGS (3)
  1. JANUVIA [Suspect]
     Active Substance: SITAGLIPTIN PHOSPHATE
     Dosage: 100 MG, UNK
     Route: 048
     Dates: start: 20110721, end: 20110902
  2. JANUVIA [Suspect]
     Active Substance: SITAGLIPTIN PHOSPHATE
     Indication: TYPE 2 DIABETES MELLITUS
     Dosage: 50 MG, BID
     Route: 048
     Dates: start: 201101, end: 201106
  3. JANUMET [Suspect]
     Active Substance: METFORMIN HYDROCHLORIDE\SITAGLIPTIN PHOSPHATE
     Dosage: UNK
     Route: 048
     Dates: start: 2010, end: 2011

REACTIONS (24)
  - Pancreatitis [Unknown]
  - Cystic fibrosis [Unknown]
  - Accident [Unknown]
  - Aspiration [Unknown]
  - Cholelithiasis [Unknown]
  - Diverticulum [Unknown]
  - Radiotherapy [Unknown]
  - Bile duct adenocarcinoma [Unknown]
  - Dysphagia [Unknown]
  - Cholelithiasis [Unknown]
  - Gallbladder disorder [Unknown]
  - Renal cyst [Unknown]
  - Pneumonia klebsiella [Unknown]
  - Radiation oesophagitis [Unknown]
  - Hepatic lesion [Unknown]
  - Pancreatic carcinoma [Fatal]
  - Fall [Unknown]
  - Asthenia [Unknown]
  - Exploratory operation [Unknown]
  - Malnutrition [Unknown]
  - Sepsis [Recovered/Resolved]
  - Endoscopic retrograde cholangiopancreatography [Unknown]
  - Transient ischaemic attack [Unknown]
  - Pneumonia [Unknown]

NARRATIVE: CASE EVENT DATE: 201003
